FAERS Safety Report 9614684 (Version 1)
Quarter: 2013Q4

REPORT INFORMATION
  Report Type: Report from Study
  Country: CA (occurrence: CA)
  Receive Date: 20131011
  Receipt Date: 20131011
  Transmission Date: 20140711
  Serious: Yes (Other)
  Sender: FDA-Public Use
  Company Number: CA-JNJFOC-20131003173

PATIENT
  Sex: Male
  Weight: 99 kg

DRUGS (10)
  1. REMICADE [Suspect]
     Indication: CROHN^S DISEASE
     Dosage: 3RD LOADING DOSE
     Route: 042
     Dates: start: 20130821
  2. AZATHIOPRINE [Concomitant]
     Route: 065
  3. ATENOL [Concomitant]
     Route: 065
  4. TELMISARTAN [Concomitant]
     Route: 065
  5. LYRICA [Concomitant]
     Route: 065
  6. COVERSYL [Concomitant]
     Route: 065
  7. CIPRALEX [Concomitant]
     Route: 065
  8. CIPRO [Concomitant]
     Route: 065
  9. B12 [Concomitant]
     Route: 065
  10. VITAMIN C [Concomitant]
     Route: 065

REACTIONS (6)
  - Syncope [Not Recovered/Not Resolved]
  - Abscess [Not Recovered/Not Resolved]
  - Heart valve operation [Unknown]
  - Fall [Unknown]
  - Chest pain [Not Recovered/Not Resolved]
  - Dizziness [Not Recovered/Not Resolved]
